FAERS Safety Report 6357043-0 (Version None)
Quarter: 2009Q3

REPORT INFORMATION
  Report Type: 
  Country: None (occurrence: None)
  Receive Date: 20090915
  Receipt Date: 20090309
  Transmission Date: 20100115
  Serious: No
  Sender: FDA-Public Use
  Company Number: US-ABBOTT-09P-163-0561519-00

PATIENT
  Sex: Male
  Weight: 45.4 kg

DRUGS (2)
  1. DEPAKOTE [Suspect]
     Indication: DRUG USE FOR UNKNOWN INDICATION
     Dosage: 4 CAPSULES IN THE MORNING AND 6 CAPSULES AT NIGHT
     Route: 048
     Dates: end: 20090101
  2. DEPAKOTE [Suspect]
     Route: 048
     Dates: start: 20090201

REACTIONS (4)
  - AGITATION [None]
  - DISTURBANCE IN ATTENTION [None]
  - IRRITABILITY [None]
  - SLEEP DISORDER [None]
